FAERS Safety Report 5352059-5 (Version None)
Quarter: 2007Q2

REPORT INFORMATION
  Report Type: 
  Country: None (occurrence: None)
  Receive Date: 20070611
  Receipt Date: 20070606
  Transmission Date: 20071010
  Serious: Yes (Other)
  Sender: FDA-Public Use
  Company Number: JP-BAYER-200712995GDS

PATIENT
  Age: 58 Year
  Sex: Female

DRUGS (3)
  1. ASPIRIN [Suspect]
     Indication: LACUNAR INFARCTION
     Route: 048
     Dates: start: 20010807, end: 20011019
  2. ASPIRIN [Suspect]
     Route: 048
     Dates: start: 20011020, end: 20011021
  3. BUFFERIN [Suspect]
     Indication: LACUNAR INFARCTION
     Dosage: AS USED: 81 MG
     Route: 048
     Dates: start: 20001021, end: 20010806

REACTIONS (3)
  - ALTERED STATE OF CONSCIOUSNESS [None]
  - HEMIPLEGIA [None]
  - THALAMUS HAEMORRHAGE [None]
